FAERS Safety Report 15959805 (Version 2)
Quarter: 2019Q1

REPORT INFORMATION
  Report Type: Spontaneous
  Country: JP (occurrence: JP)
  Receive Date: 20190214
  Receipt Date: 20190304
  Transmission Date: 20190417
  Serious: Yes (Other)
  Sender: FDA-Public Use
  Company Number: JP-TEVA-2019-JP-1004875

PATIENT
  Age: 75 Year
  Sex: Male

DRUGS (4)
  1. AZILECT [Suspect]
     Active Substance: RASAGILINE MESYLATE
     Indication: PARKINSON^S DISEASE
     Dosage: .5 MILLIGRAM DAILY;
     Route: 048
     Dates: start: 20181119, end: 20181218
  2. MENESIT [Suspect]
     Active Substance: CARBIDOPA\LEVODOPA
     Indication: PARKINSON^S DISEASE
     Dosage: 150 MILLIGRAM DAILY;
     Route: 048
     Dates: start: 20181227, end: 20190114
  3. AZILECT [Suspect]
     Active Substance: RASAGILINE MESYLATE
     Dosage: 1 MILLIGRAM DAILY; INCREASED BECAUSE OF PERSISTENCE OF THE SHAKING OF THE LEFT HAND
     Route: 048
     Dates: start: 20181219
  4. MIRAPEX [Suspect]
     Active Substance: PRAMIPEXOLE DIHYDROCHLORIDE
     Indication: PARKINSON^S DISEASE
     Dosage: .75 MILLIGRAM DAILY; SLOW RELEASE TABLET
     Route: 048
     Dates: start: 20190115, end: 20190116

REACTIONS (5)
  - Nausea [Recovered/Resolved]
  - Depressed level of consciousness [Recovered/Resolved]
  - Motor dysfunction [Recovering/Resolving]
  - Tremor [Not Recovered/Not Resolved]
  - Vertigo [Recovered/Resolved]

NARRATIVE: CASE EVENT DATE: 20181126
